FAERS Safety Report 6714191-0 (Version None)
Quarter: 2010Q2

REPORT INFORMATION
  Report Type: 
  Country: None (occurrence: None)
  Receive Date: 20100503
  Receipt Date: 20100418
  Transmission Date: 20101027
  Serious: Yes (Other)
  Sender: FDA-Public Use
  Company Number: A-CH2010-36072

PATIENT
  Age: 23 Year
  Sex: Female
  Weight: 56 kg

DRUGS (2)
  1. TRACLEER [Suspect]
     Indication: PULMONARY ARTERIAL HYPERTENSION
     Dosage: ORAL, ORAL
     Route: 048
  2. ILOPROST (ILOPROST) [Suspect]
     Indication: PULMONARY ARTERIAL HYPERTENSION
     Dosage: RESPIRATORY
     Route: 055

REACTIONS (6)
  - CAESAREAN SECTION [None]
  - CARDIO-RESPIRATORY ARREST [None]
  - DRUG EXPOSURE DURING PREGNANCY [None]
  - GENERAL PHYSICAL HEALTH DETERIORATION [None]
  - PREGNANCY [None]
  - PREMATURE BABY [None]
